FAERS Safety Report 24231930 (Version 1)
Quarter: 2024Q3

REPORT INFORMATION
  Report Type: Report from Study
  Country: CA (occurrence: None)
  Receive Date: 20240821
  Receipt Date: 20240821
  Transmission Date: 20241016
  Serious: Yes (Other)
  Sender: ORION
  Company Number: CA-PFIZER INC-202400238361

PATIENT
  Age: 52 Year
  Sex: Female

DRUGS (13)
  1. METHOTREXATE [Suspect]
     Active Substance: METHOTREXATE
     Indication: Product used for unknown indication
  2. REMICADE [Suspect]
     Active Substance: INFLIXIMAB
     Indication: Crohn^s disease
  3. REMICADE [Suspect]
     Active Substance: INFLIXIMAB
  4. REMICADE [Suspect]
     Active Substance: INFLIXIMAB
     Dosage: 1 CYCLICAL
  5. ATIVAN [Concomitant]
     Active Substance: LORAZEPAM
  6. FOLIC ACID [Concomitant]
     Active Substance: FOLIC ACID
  7. IRON [Concomitant]
     Active Substance: IRON
  8. MAGNESIUM [Concomitant]
     Active Substance: MAGNESIUM
  9. PANTOPRAZOLE SODIUM [Concomitant]
     Active Substance: PANTOPRAZOLE SODIUM
  10. PINAVERIUM BROMIDE [Concomitant]
     Active Substance: PINAVERIUM BROMIDE
  11. POTASSIUM [Concomitant]
     Active Substance: POTASSIUM
  12. TORADOL [Concomitant]
     Active Substance: KETOROLAC TROMETHAMINE
  13. VITAMIN K [Concomitant]
     Active Substance: PHYTONADIONE

REACTIONS (5)
  - Rash [Not Recovered/Not Resolved]
  - Arthralgia [Not Recovered/Not Resolved]
  - Joint effusion [Not Recovered/Not Resolved]
  - Off label use [Not Recovered/Not Resolved]
  - Product dose omission issue [Not Recovered/Not Resolved]
